FAERS Safety Report 5832065-4 (Version None)
Quarter: 2008Q3

REPORT INFORMATION
  Report Type: 
  Country: None (occurrence: None)
  Receive Date: 20080804
  Receipt Date: 20080724
  Transmission Date: 20090109
  Serious: Yes (Other)
  Sender: FDA-Public Use
  Company Number: US-ROCHE-577561

PATIENT
  Sex: Female
  Weight: 62.6 kg

DRUGS (3)
  1. ACCUTANE [Suspect]
     Indication: ACNE
     Dosage: PATIENT WAS DISPENSED ISOTRETINOIN 40 MG CAPSULES ON 21 MARCH 2008,21 APRIL 2008 AND 25 JUNE 2008.
     Route: 065
     Dates: start: 20080321, end: 20080624
  2. ACCUTANE [Suspect]
     Dosage: DOSE: 40 MG TWICE DAILY AND 40 MG THRICE DAILY ON ALTERNATIVE DAYS.
     Route: 065
     Dates: end: 20080717
  3. CLARAVIS [Suspect]
     Indication: ACNE
     Dosage: THE PATIENT WAS DISPENSED ISOTRETINOIN 40 MG CAPSULES ON 27 MAY 2008.
     Route: 065

REACTIONS (1)
  - SELF-INJURIOUS IDEATION [None]
